FAERS Safety Report 14920497 (Version 1)
Quarter: 2018Q2

REPORT INFORMATION
  Report Type: Spontaneous
  Country: JP (occurrence: JP)
  Receive Date: 20180521
  Receipt Date: 20180521
  Transmission Date: 20180711
  Serious: Yes (Hospitalization)
  Sender: FDA-Public Use
  Company Number: JP-DSJP-DSJ-2018-113250

PATIENT

DRUGS (12)
  1. BERAPROST [Concomitant]
     Active Substance: BERAPROST
     Indication: PERIPHERAL ARTERIAL OCCLUSIVE DISEASE
     Dosage: 40 ?G, TID
     Route: 048
     Dates: start: 20160610, end: 20170808
  2. TAKEPRON [Concomitant]
     Active Substance: LANSOPRAZOLE
     Indication: PRODUCT USED FOR UNKNOWN INDICATION
     Dosage: 15 MG, QD
     Route: 048
     Dates: end: 20170808
  3. ALLOID G [Concomitant]
     Active Substance: SODIUM ALGINATE
     Indication: PRODUCT USED FOR UNKNOWN INDICATION
     Dosage: 50 ML, QID
     Route: 048
     Dates: end: 20170801
  4. LEPETAN [Concomitant]
     Active Substance: BUPRENORPHINE HYDROCHLORIDE
     Indication: PANCREATITIS ACUTE
     Dosage: 0.6 MG, QD
     Route: 042
     Dates: start: 20170802, end: 20170808
  5. ANTIBIOTICS [Concomitant]
     Active Substance: UNSPECIFIED INGREDIENT
     Indication: PANCREATITIS ACUTE
     Dosage: UNK
     Route: 065
  6. GASTROM [Concomitant]
     Active Substance: ECABET SODIUM
     Indication: PRODUCT USED FOR UNKNOWN INDICATION
     Dosage: 1 DF, BID
     Route: 048
     Dates: end: 20170808
  7. CEFMETAZOLE SODIUM [Concomitant]
     Active Substance: CEFMETAZOLE SODIUM
     Indication: PANCREATITIS ACUTE
     Dosage: 1 G, TID
     Route: 042
     Dates: start: 20170802, end: 20170802
  8. WYSTAL [Concomitant]
     Active Substance: CEFOPERAZONE SODIUM\SULBACTAM SODIUM
     Indication: PANCREATITIS ACUTE
     Dosage: 1 G, BID
     Route: 042
     Dates: start: 20170803, end: 20170808
  9. ANPLAG [Concomitant]
     Active Substance: SARPOGRELATE
     Indication: PERIPHERAL ARTERIAL OCCLUSIVE DISEASE
     Dosage: 100 MG, TID
     Route: 048
     Dates: start: 20160701, end: 20170808
  10. MIRACLID [Concomitant]
     Active Substance: ULINASTATIN
     Indication: PANCREATITIS ACUTE
     Dosage: 50000 IU, TID
     Route: 042
     Dates: start: 20170802, end: 20170808
  11. LIXIANA TABLETS [Suspect]
     Active Substance: EDOXABAN TOSYLATE
     Indication: ANTIPHOSPHOLIPID SYNDROME
     Dosage: 30 MG, QD
     Route: 048
     Dates: start: 20141031, end: 20170808
  12. REPLENISHER SOLUTION [Concomitant]
     Indication: PANCREATITIS ACUTE
     Dosage: UNK
     Route: 065

REACTIONS (2)
  - Adrenal haemorrhage [Recovering/Resolving]
  - Adrenal insufficiency [Recovering/Resolving]

NARRATIVE: CASE EVENT DATE: 20170804
